FAERS Safety Report 24988573 (Version 3)
Quarter: 2025Q3

REPORT INFORMATION
  Report Type: Spontaneous
  Country: JP (occurrence: JP)
  Receive Date: 20250220
  Receipt Date: 20250922
  Transmission Date: 20251021
  Serious: Yes (Other)
  Sender: BRISTOL-MYERS SQUIBB COMPANY
  Company Number: JP-BRISTOL-MYERS SQUIBB COMPANY-2025-021950

PATIENT
  Age: 9 Decade
  Weight: 51.4 kg

DRUGS (2)
  1. YERVOY [Suspect]
     Active Substance: IPILIMUMAB
     Indication: Non-small cell lung cancer
  2. OPDIVO [Suspect]
     Active Substance: NIVOLUMAB
     Indication: Non-small cell lung cancer

REACTIONS (5)
  - Weight decreased [Unknown]
  - Malaise [Unknown]
  - Decreased appetite [Unknown]
  - Dyspnoea [Unknown]
  - Cachexia [Unknown]

NARRATIVE: CASE EVENT DATE: 20240821
